FAERS Safety Report 21313158 (Version 4)
Quarter: 2022Q4

REPORT INFORMATION
  Report Type: Spontaneous
  Country: CN (occurrence: CN)
  Receive Date: 20220909
  Receipt Date: 20221004
  Transmission Date: 20230112
  Serious: Yes (Death, Life-Threatening, Hospitalization, Other)
  Sender: FDA-Public Use
  Company Number: CN-BRACCO-2022CN03534

PATIENT
  Age: 71 Year
  Sex: Male

DRUGS (2)
  1. IOPAMIDOL [Suspect]
     Active Substance: IOPAMIDOL
     Indication: Computerised tomogram
     Dosage: 75 ML, SINGLE AT THE RATE OF 3 ML/S
     Route: 042
     Dates: start: 20220902, end: 20220902
  2. SODIUM CHLORIDE [Concomitant]
     Active Substance: SODIUM CHLORIDE
     Dosage: 20 ML
     Route: 042
     Dates: start: 20220902, end: 20220902

REACTIONS (2)
  - Anaphylactic shock [Fatal]
  - Contrast media allergy [Fatal]

NARRATIVE: CASE EVENT DATE: 20220902
